FAERS Safety Report 7273570-6 (Version None)
Quarter: 2011Q1

REPORT INFORMATION
  Report Type: 
  Country: None (occurrence: None)
  Receive Date: 20110203
  Receipt Date: 20101007
  Transmission Date: 20110831
  Serious: No
  Sender: FDA-Public Use
  Company Number: US-ABBOTT-10P-163-0677241-00

PATIENT
  Sex: Female
  Weight: 82.628 kg

DRUGS (10)
  1. HUMALOG [Concomitant]
     Indication: TYPE 1 DIABETES MELLITUS
  2. NAPROXEN [Concomitant]
     Indication: FIBROMYALGIA
  3. PLAQUENIL [Concomitant]
     Indication: ARTHRITIS
  4. SULFASALAZINE [Concomitant]
     Indication: ARTHRITIS
  5. SYNTHROID [Suspect]
     Indication: HYPOTHYROIDISM
     Dates: start: 20100911, end: 20100913
  6. PRILOSEC [Concomitant]
     Indication: PRODUCT USED FOR UNKNOWN INDICATION
  7. ZYRTEC [Concomitant]
     Indication: HYPERSENSITIVITY
  8. DIOVAN [Concomitant]
     Indication: HYPERTENSION
  9. CARDIZEM LA [Concomitant]
     Indication: VENTRICULAR TACHYCARDIA
  10. CRESTOR [Concomitant]
     Indication: BLOOD CHOLESTEROL INCREASED

REACTIONS (2)
  - PALPITATIONS [None]
  - BLOOD GLUCOSE INCREASED [None]
